FAERS Safety Report 17758803 (Version 1)
Quarter: 2020Q2

REPORT INFORMATION
  Report Type: Spontaneous
  Country: US (occurrence: US)
  Receive Date: 20200507
  Receipt Date: 20200507
  Transmission Date: 20200714
  Serious: No
  Sender: FDA-Public Use
  Company Number: US-GLENMARK PHARMACEUTICALS-2020GMK047107

PATIENT

DRUGS (2)
  1. FLUOCINOLONE ACETONIDE 0.01% TOPICAL OIL (BODY OIL) [Suspect]
     Active Substance: FLUOCINOLONE ACETONIDE
     Indication: ECZEMA
  2. FLUOCINOLONE ACETONIDE 0.01% TOPICAL OIL (BODY OIL) [Suspect]
     Active Substance: FLUOCINOLONE ACETONIDE
     Indication: SEBORRHOEIC DERMATITIS
     Dosage: UNK, BID
     Route: 061
     Dates: start: 20200310

REACTIONS (9)
  - Application site inflammation [Recovering/Resolving]
  - Application site irritation [Recovering/Resolving]
  - Application site pain [Recovering/Resolving]
  - Product use issue [Unknown]
  - Drug effective for unapproved indication [Unknown]
  - Application site swelling [Recovering/Resolving]
  - Application site erythema [Recovering/Resolving]
  - Reaction to excipient [Recovering/Resolving]
  - Application site pruritus [Recovering/Resolving]

NARRATIVE: CASE EVENT DATE: 2020
